FAERS Safety Report 4645261-9 (Version None)
Quarter: 2005Q2

REPORT INFORMATION
  Report Type: 
  Country: None (occurrence: None)
  Receive Date: 20050331
  Receipt Date: 20050210
  Transmission Date: 20051028
  Serious: Yes (Death)
  Sender: FDA-Public Use
  Company Number: 04P-163-0269609-00

PATIENT
  Age: 78 Year
  Sex: Female

DRUGS (14)
  1. HUMIRA [Suspect]
     Indication: RHEUMATOID ARTHRITIS
     Dosage: 40 MG, 1 IN 2 WK, SUBCUTANEOUS
     Route: 058
     Dates: start: 20030901, end: 20040427
  2. LEXAPRO [Concomitant]
  3. CALCITONIN-SALMON [Concomitant]
  4. RANITIDINE HYDROCHLORIDE [Concomitant]
  5. DYAZIDE [Concomitant]
  6. BETACAROTENE [Concomitant]
  7. DOCUSATE SODIUM [Concomitant]
  8. FERROUS SULFATE TAB [Concomitant]
  9. MULTI-VITAMINS [Concomitant]
  10. RISPERIDONE [Concomitant]
  11. LORAZEPAM [Concomitant]
  12. FUROSEMIDE [Concomitant]
  13. VENLAFAXINE HCL [Concomitant]
  14. CEPHALEXIN MONOHYDRATE [Concomitant]

REACTIONS (1)
  - DEATH [None]
